FAERS Safety Report 4744148-0 (Version None)
Quarter: 2005Q3

REPORT INFORMATION
  Report Type: 
  Country: None (occurrence: None)
  Receive Date: 20050810
  Receipt Date: 20050810
  Transmission Date: 20060218
  Serious: Yes (Disabling)
  Sender: FDA-Public Use
  Company Number: None

PATIENT
  Sex: Female
  Weight: 78.0187 kg

DRUGS (2)
  1. ZOCOR [Suspect]
     Indication: BLOOD CHOLESTEROL INCREASED
     Dosage: 20 MG DAILY PO [TOOK { 1 YR]
     Route: 048
  2. ZOCOR [Suspect]
     Indication: C-REACTIVE PROTEIN INCREASED
     Dosage: 20 MG DAILY PO [TOOK { 1 YR]
     Route: 048

REACTIONS (8)
  - BLISTER [None]
  - BURNING SENSATION [None]
  - DIFFICULTY IN WALKING [None]
  - FUNGAL INFECTION [None]
  - MULTIPLE SCLEROSIS [None]
  - OEDEMA PERIPHERAL [None]
  - PAIN IN EXTREMITY [None]
  - PARAESTHESIA [None]
